FAERS Safety Report 9725371 (Version 1)
Quarter: 2013Q4

REPORT INFORMATION
  Report Type: Spontaneous
  Country: US (occurrence: US)
  Receive Date: 20131203
  Receipt Date: 20131203
  Transmission Date: 20140711
  Serious: No
  Sender: FDA-Public Use
  Company Number: US-009507513-1311USA011698

PATIENT
  Sex: Female

DRUGS (3)
  1. SAPHRIS [Suspect]
     Dosage: UNK
     Route: 060
     Dates: end: 20131125
  2. LASIX (FUROSEMIDE) [Concomitant]
  3. NEURONTIN [Concomitant]

REACTIONS (1)
  - Fluid retention [Unknown]
